FAERS Safety Report 17653486 (Version 1)
Quarter: 2020Q2

REPORT INFORMATION
  Report Type: Spontaneous
  Country: US (occurrence: US)
  Receive Date: 20200410
  Receipt Date: 20200410
  Transmission Date: 20200713
  Serious: No
  Sender: FDA-Public Use
  Company Number: US-SA-2020SA085363

PATIENT
  Sex: Male

DRUGS (1)
  1. ADMELOG [Suspect]
     Active Substance: INSULIN LISPRO
     Dosage: UNK

REACTIONS (4)
  - Product dose omission [Unknown]
  - Blood glucose abnormal [Unknown]
  - Malaise [Unknown]
  - Therapeutic response decreased [Unknown]
